FAERS Safety Report 6583536-7 (Version None)
Quarter: 2010Q1

REPORT INFORMATION
  Report Type: 
  Country: None (occurrence: None)
  Receive Date: 20100216
  Receipt Date: 20100212
  Transmission Date: 20100710
  Serious: Yes (Death)
  Sender: FDA-Public Use
  Company Number: PHEH2010US02470

PATIENT
  Sex: Female
  Weight: 52.608 kg

DRUGS (1)
  1. EXJADE [Suspect]
     Dosage: 1500 MG/DAY

REACTIONS (1)
  - DEATH [None]
